FAERS Safety Report 12613543 (Version 2)
Quarter: 2024Q2

REPORT INFORMATION
  Report Type: Other
  Country: PL (occurrence: PL)
  Receive Date: 20160802
  Receipt Date: 20240416
  Transmission Date: 20240715
  Serious: Yes (Hospitalization, Other)
  Sender: FDA-Public Use
  Company Number: PL-ROCHE-1806367

PATIENT
  Age: 22 Year
  Sex: Female

DRUGS (15)
  1. RIBAVIRIN [Suspect]
     Active Substance: RIBAVIRIN
     Indication: Hepatitis C
     Route: 065
  2. RIBAVIRIN [Suspect]
     Active Substance: RIBAVIRIN
     Indication: Hepatitis cholestatic
     Dosage: 400 + 600 MG/DAY
     Route: 065
  3. RIBAVIRIN [Suspect]
     Active Substance: RIBAVIRIN
     Route: 065
  4. RIBAVIRIN [Suspect]
     Active Substance: RIBAVIRIN
     Route: 065
  5. PEGINTERFERON ALFA-2A [Suspect]
     Active Substance: PEGINTERFERON ALFA-2A
     Indication: Hepatitis C
     Route: 065
     Dates: start: 20120903
  6. PEGINTERFERON ALFA-2A [Suspect]
     Active Substance: PEGINTERFERON ALFA-2A
     Route: 065
  7. PEGINTERFERON ALFA-2A [Suspect]
     Active Substance: PEGINTERFERON ALFA-2A
     Dosage: 90-135MCG/WEEK
     Route: 065
  8. MYCOPHENOLATE MOFETIL [Suspect]
     Active Substance: MYCOPHENOLATE MOFETIL
     Indication: Immunosuppression
     Route: 065
     Dates: start: 201207
  9. TELAPREVIR [Suspect]
     Active Substance: TELAPREVIR
     Indication: Antiviral treatment
     Dosage: LAST DOSE 01/DEC/2012
     Route: 065
     Dates: start: 20121014
  10. TELAPREVIR [Suspect]
     Active Substance: TELAPREVIR
     Indication: Hepatitis cholestatic
  11. SOFOSBUVIR [Suspect]
     Active Substance: SOFOSBUVIR
     Indication: Hepatitis cholestatic
     Route: 065
     Dates: start: 20130909
  12. TACROLIMUS [Suspect]
     Active Substance: TACROLIMUS
     Indication: Immunosuppression
     Route: 065
  13. TACROLIMUS [Suspect]
     Active Substance: TACROLIMUS
     Dosage: 0.5 MG+1MG
     Route: 065
  14. PREDNISONE [Suspect]
     Active Substance: PREDNISONE
     Indication: Immunosuppression
     Route: 065
     Dates: start: 201207
  15. DACLATASVIR [Suspect]
     Active Substance: DACLATASVIR
     Indication: Hepatitis cholestatic
     Dosage: LAST DOSE ADMINISTERED 27/MAY/2013
     Route: 065
     Dates: start: 20130225

REACTIONS (23)
  - Thrombocytopenia [Unknown]
  - Pancytopenia [Not Recovered/Not Resolved]
  - Neutropenia [Unknown]
  - Leukopenia [Unknown]
  - Anaemia [Unknown]
  - Hepatitis C [Unknown]
  - Genital candidiasis [Unknown]
  - Upper respiratory tract infection [Unknown]
  - Hepatitis cholestatic [Recovered/Resolved]
  - Clostridium difficile infection [Recovered/Resolved]
  - Oral candidiasis [Unknown]
  - Ascites [Unknown]
  - Hepatic encephalopathy [Unknown]
  - Graft loss [Unknown]
  - Hepatic failure [Unknown]
  - Hepatic cirrhosis [Unknown]
  - Urinary tract infection [Unknown]
  - Fibrosis [Unknown]
  - Hypoalbuminaemia [Unknown]
  - Gastric ulcer [Recovered/Resolved]
  - Hypogammaglobulinaemia [Recovered/Resolved]
  - Anal pruritus [Unknown]
  - Drug ineffective [Unknown]
